FAERS Safety Report 9678352 (Version 2)
Quarter: 2013Q4

REPORT INFORMATION
  Report Type: Report from Study
  Country: US (occurrence: US)
  Receive Date: 20131108
  Receipt Date: 20131108
  Transmission Date: 20140711
  Serious: Yes (Hospitalization)
  Sender: FDA-Public Use
  Company Number: US-ACTELION-A-CH2013-89984

PATIENT
  Age: 53 Year
  Sex: Female
  Weight: 138.37 kg

DRUGS (21)
  1. MACITENTAN [Suspect]
     Indication: PULMONARY ARTERIAL HYPERTENSION
     Dosage: 10 MG, OD
     Route: 048
     Dates: start: 20130522
  2. LASIX [Concomitant]
  3. PREDNISONE [Concomitant]
  4. POTASSIUM CHLORIDE [Concomitant]
  5. CLINDAMYCIN [Concomitant]
  6. PHENERGAN W/ CODEINE [Concomitant]
  7. MONTELUKAST [Concomitant]
  8. TIOTROPIUM [Concomitant]
  9. METFORMIN [Concomitant]
  10. CALCIUM CITRATE WITH VITAMIN D [Concomitant]
  11. SERTRALINE [Concomitant]
  12. ALBUTEROL [Concomitant]
  13. BUDESONIDE W/FORMOTEROL FUMARATE [Concomitant]
  14. PANTOPRAZOLE [Concomitant]
  15. SPIRONOLACTONE [Concomitant]
  16. TORSEMIDE [Concomitant]
  17. LANTUS [Concomitant]
  18. ACETAMINOPHEN [Concomitant]
  19. MINTOX [Concomitant]
  20. PROMETHAZINE [Concomitant]
  21. HUMALOG [Concomitant]

REACTIONS (13)
  - Chronic obstructive pulmonary disease [Recovered/Resolved]
  - Right ventricular failure [Recovered/Resolved]
  - Pulmonary arterial hypertension [Recovered/Resolved]
  - Condition aggravated [Recovered/Resolved]
  - Diabetes mellitus inadequate control [Recovered/Resolved]
  - Hypokalaemia [Unknown]
  - Dyspnoea exertional [Recovered/Resolved]
  - Weight increased [Recovered/Resolved]
  - Brain natriuretic peptide increased [Recovered/Resolved]
  - Oedema [Recovered/Resolved]
  - Right atrial pressure increased [Recovered/Resolved]
  - Right ventricular systolic pressure increased [Recovered/Resolved]
  - Fluid retention [Recovered/Resolved]
